FAERS Safety Report 6060589-6 (Version None)
Quarter: 2009Q1

REPORT INFORMATION
  Report Type: 
  Country: None (occurrence: None)
  Receive Date: 20090202
  Receipt Date: 20090126
  Transmission Date: 20090719
  Serious: Yes (Death, Life-Threatening)
  Sender: FDA-Public Use
  Company Number: NL-BRISTOL-MYERS SQUIBB COMPANY-14485809

PATIENT
  Age: 53 Year
  Sex: Male

DRUGS (5)
  1. CETUXIMAB [Suspect]
     Indication: NON-SMALL CELL LUNG CANCER
     Dosage: STRENGTH:5MG/ML;  RECENT INFUSION:5AUG08
     Route: 042
     Dates: start: 20080701
  2. CARBOPLATIN [Suspect]
     Indication: NON-SMALL CELL LUNG CANCER
     Dosage: 1 DOSAGE FORM= 5AUC;RECENT INFUSION :17JUN08
     Route: 042
     Dates: start: 20080527
  3. CISPLATIN [Suspect]
     Indication: NON-SMALL CELL LUNG CANCER
     Route: 042
     Dates: start: 20080722
  4. GEMCITABINE [Suspect]
     Indication: NON-SMALL CELL LUNG CANCER
     Dosage: RECENT INFUSION :24JUN08
     Route: 042
     Dates: start: 20080527
  5. VINORELBINE [Suspect]
     Indication: NON-SMALL CELL LUNG CANCER

REACTIONS (3)
  - CARDIAC ARREST [None]
  - HAEMOPTYSIS [None]
  - PULMONARY NECROSIS [None]
